FAERS Safety Report 18006704 (Version 1)
Quarter: 2020Q3

REPORT INFORMATION
  Report Type: Spontaneous
  Country: US (occurrence: US)
  Receive Date: 20200710
  Receipt Date: 20200710
  Transmission Date: 20201103
  Serious: No
  Sender: FDA-Public Use
  Company Number: None

PATIENT
  Sex: Male

DRUGS (1)
  1. HALOPERIDOL CONCENTRATE [Suspect]
     Active Substance: HALOPERIDOL
     Route: 048
     Dates: start: 20190701, end: 20190729

REACTIONS (8)
  - Dysphagia [None]
  - Parkinsonism [None]
  - Dystonia [None]
  - Gait disturbance [None]
  - Cough [None]
  - Drooling [None]
  - Locked-in syndrome [None]
  - Extrapyramidal disorder [None]

NARRATIVE: CASE EVENT DATE: 20190701
